FAERS Safety Report 13748243 (Version 1)
Quarter: 2017Q3

REPORT INFORMATION
  Report Type: Spontaneous
  Country: AU (occurrence: AU)
  Receive Date: 20170713
  Receipt Date: 20170713
  Transmission Date: 20171127
  Serious: Yes (Other)
  Sender: FDA-Public Use
  Company Number: AU-ROCHE-1960221

PATIENT
  Age: 53 Year
  Sex: Male

DRUGS (2)
  1. VALIUM [Suspect]
     Active Substance: DIAZEPAM
     Indication: ACCIDENT AT WORK
     Route: 065
  2. OXYCODONE [Concomitant]
     Active Substance: OXYCODONE

REACTIONS (5)
  - Diarrhoea [Unknown]
  - Cerebrovascular accident [Unknown]
  - Withdrawal syndrome [Unknown]
  - Tremor [Unknown]
  - Rhinorrhoea [Unknown]
